FAERS Safety Report 6841387-X (Version None)
Quarter: 2010Q3

REPORT INFORMATION
  Report Type: 
  Country: None (occurrence: None)
  Receive Date: 20100714
  Receipt Date: 20070703
  Transmission Date: 20110219
  Serious: No
  Sender: FDA-Public Use
  Company Number: US-PFIZER INC-2007055674

PATIENT
  Sex: Female

DRUGS (8)
  1. CHANTIX [Suspect]
     Indication: SMOKING CESSATION THERAPY
     Dates: start: 20070601, end: 20070627
  2. PLAVIX [Concomitant]
     Dates: start: 20060101
  3. METOPROLOL [Concomitant]
     Dates: start: 20060101
  4. ACETYLSALICYLIC ACID [Concomitant]
     Dates: start: 20060101
  5. ALL OTHER THERAPEUTIC PRODUCTS [Concomitant]
  6. MULTI-VITAMINS [Concomitant]
     Dates: start: 20070101
  7. VITAMIN D [Concomitant]
     Dates: start: 20070101
  8. ZOLOFT [Concomitant]
     Dates: start: 20040101

REACTIONS (1)
  - RASH [None]
